FAERS Safety Report 6554479-X (Version None)
Quarter: 2010Q1

REPORT INFORMATION
  Report Type: 
  Country: None (occurrence: None)
  Receive Date: 20100127
  Receipt Date: 20100118
  Transmission Date: 20100710
  Serious: Yes (Life-Threatening, Hospitalization)
  Sender: FDA-Public Use
  Company Number: NL-WYE-G05369310

PATIENT
  Age: 32 Year
  Sex: Female

DRUGS (6)
  1. EFFEXOR XR [Suspect]
     Indication: DEPRESSION
     Route: 048
     Dates: start: 20050101
  2. EFFEXOR XR [Suspect]
     Route: 048
     Dates: end: 20070101
  3. EFFEXOR XR [Suspect]
     Route: 048
     Dates: start: 20070101
  4. EFFEXOR XR [Suspect]
     Route: 048
     Dates: end: 20090901
  5. EFFEXOR XR [Suspect]
     Dosage: GRADUALLY DECREASED AND WITHDRAWN
     Route: 048
     Dates: start: 20090901, end: 20090901
  6. TRIGYNON [Concomitant]
     Indication: CONTRACEPTION

REACTIONS (2)
  - PANCREATIC NEUROENDOCRINE TUMOUR METASTATIC [None]
  - SMALL INTESTINE CARCINOMA METASTATIC [None]
